FAERS Safety Report 5665128-7 (Version None)
Quarter: 2008Q1

REPORT INFORMATION
  Report Type: 
  Country: None (occurrence: None)
  Receive Date: 20080314
  Receipt Date: 20080307
  Transmission Date: 20080703
  Serious: Yes (Hospitalization)
  Sender: FDA-Public Use
  Company Number: AU-MERCK-0803AUS00095

PATIENT
  Age: 77 Year
  Sex: Female

DRUGS (2)
  1. FOSAMAX [Suspect]
     Indication: OSTEOPOROSIS
     Route: 048
     Dates: start: 20060101, end: 20060101
  2. DIPYRIDAMOLE [Concomitant]
     Route: 065
     Dates: start: 20040101

REACTIONS (6)
  - AMNESIA [None]
  - CARDIAC DISORDER [None]
  - DIARRHOEA [None]
  - MALAISE [None]
  - OEDEMA PERIPHERAL [None]
  - VOMITING [None]
